FAERS Safety Report 6184008-4 (Version None)
Quarter: 2009Q2

REPORT INFORMATION
  Report Type: 
  Country: None (occurrence: None)
  Receive Date: 20090508
  Receipt Date: 20090428
  Transmission Date: 20091009
  Serious: Yes (Hospitalization, Other)
  Sender: FDA-Public Use
  Company Number: FR-PFIZER INC-2009165839

PATIENT
  Age: 79 Year

DRUGS (11)
  1. ZYVOXID [Suspect]
     Indication: STAPHYLOCOCCAL INFECTION
     Dosage: 600 MG, 2X/DAY
     Route: 048
     Dates: start: 20090126, end: 20090131
  2. VANCOMYCIN HYDROCHLORIDE [Concomitant]
  3. GENTAMICIN [Concomitant]
  4. ACTRAPID [Concomitant]
     Route: 058
  5. CALCIPARINE [Concomitant]
     Route: 058
  6. PLAVIX [Concomitant]
     Route: 048
  7. KARDEGIC [Concomitant]
     Route: 048
  8. LASIX [Concomitant]
     Route: 048
  9. CORDARONE [Concomitant]
     Dosage: 1 DF, 1X/DAY
     Route: 048
  10. CORTANCYL [Concomitant]
     Dosage: 20 MG, UNK
     Route: 048
  11. NICARDIPINE HCL [Concomitant]
     Dosage: 50 UNK, 2X/DAY

REACTIONS (1)
  - RENAL FAILURE ACUTE [None]
